FAERS Safety Report 21006163 (Version 6)
Quarter: 2023Q2

REPORT INFORMATION
  Report Type: Report from Study
  Country: CN (occurrence: CN)
  Receive Date: 20220624
  Receipt Date: 20230419
  Transmission Date: 20230721
  Serious: Yes (Hospitalization)
  Sender: FDA-Public Use
  Company Number: CN-G1-000554

PATIENT

DRUGS (21)
  1. TRILACICLIB [Suspect]
     Active Substance: TRILACICLIB
     Indication: Myelosuppression
     Dosage: 240 MG/M^2 ON DAY 1 AND 2 EACH CYCLE.
     Dates: start: 20211229, end: 20220519
  2. TRILACICLIB [Suspect]
     Active Substance: TRILACICLIB
     Dosage: 240 MG/M^2 ON DAY 1 AND 2 EACH CYCLE.
     Route: 042
     Dates: start: 20220608, end: 20220609
  3. BEVACIZUMAB [Suspect]
     Active Substance: BEVACIZUMAB
     Dosage: 5 MG/KG DAY 1 OF EACH CYCLE
     Dates: start: 20211229, end: 20220518
  4. BEVACIZUMAB [Suspect]
     Active Substance: BEVACIZUMAB
     Dosage: 5 MG/KG DAY 1 OF EACH CYCLE
     Route: 042
     Dates: start: 20220608, end: 20220608
  5. IRINOTECAN [Suspect]
     Active Substance: IRINOTECAN
     Dosage: 165 MG/M2 ON DAY 1 OF EACH CYCLE
     Dates: start: 20211229, end: 20220518
  6. IRINOTECAN [Suspect]
     Active Substance: IRINOTECAN
     Dosage: 165 MG/M2 ON DAY 1 OF EACH CYCLE
     Route: 042
     Dates: start: 20220608, end: 20220608
  7. OXALIPLATIN [Suspect]
     Active Substance: OXALIPLATIN
     Dosage: 85 MG/M2 ON DAY 1 OF EACH CYCLE
     Dates: start: 20211229, end: 20220518
  8. OXALIPLATIN [Suspect]
     Active Substance: OXALIPLATIN
     Dosage: 85 MG/M2 ON DAY 1 OF EACH CYCLELE
     Route: 042
     Dates: start: 20220608, end: 20220608
  9. LEUCOVORIN [Suspect]
     Active Substance: LEUCOVORIN
     Dosage: 400 MG/M2 ON DAY 1 OF EACH CYCLE
     Dates: start: 20211229, end: 20220518
  10. LEUCOVORIN [Suspect]
     Active Substance: LEUCOVORIN
     Dosage: 400 MG/M2 ON DAY 1 OF EACH CYCLE
     Route: 042
     Dates: start: 20220608, end: 20220608
  11. FLUOROURACIL [Suspect]
     Active Substance: FLUOROURACIL
     Dosage: 2400 MG/M2 OVER 48 HOURS BY CONTINUOUS INFUSION STARTING ON DAY 1 OF EACH CYCLE
     Dates: start: 20211229, end: 20220520
  12. FLUOROURACIL [Suspect]
     Active Substance: FLUOROURACIL
     Dosage: 2400 MG/M2 OVER 48 HOURS BY CONTINUOUS INFUSION STARTING ON DAY 1 OF EACH CYCLE
     Route: 042
     Dates: start: 20220608, end: 20220610
  13. DOLASETRON MESILATE [Concomitant]
     Indication: Vomiting
     Dosage: 2 MILLILITER, BID
     Route: 042
     Dates: start: 20220518, end: 20220518
  14. DOLASETRON MESILATE [Concomitant]
     Dosage: 2 MILLILITER, QD
     Route: 042
     Dates: start: 20220519, end: 20220520
  15. DOLASETRON MESILATE [Concomitant]
     Dosage: UNK
  16. ROXATIDINE ACETATE HYDROCHLORIDE [Concomitant]
     Active Substance: ROXATIDINE ACETATE HYDROCHLORIDE
     Indication: Antacid therapy
     Dosage: 75 MILLIGRAM, BID
     Route: 042
     Dates: start: 20220518, end: 20220520
  17. PALONOSETRON HYDROCHLORIDE [Concomitant]
     Active Substance: PALONOSETRON HYDROCHLORIDE
     Indication: Nausea
     Dosage: 5 MILLILITER, QD
     Route: 042
     Dates: start: 20220518, end: 20220518
  18. PALONOSETRON HYDROCHLORIDE [Concomitant]
     Active Substance: PALONOSETRON HYDROCHLORIDE
     Indication: Dyspepsia
  19. ATROPINE SULFATE [Concomitant]
     Active Substance: ATROPINE SULFATE
     Indication: Chemotherapy side effect prophylaxis
     Dosage: 0.5 MILLILITER, QD
     Route: 030
     Dates: start: 20220518, end: 20220518
  20. HEPARIN SODIUM [Concomitant]
     Active Substance: HEPARIN SODIUM
     Indication: Catheter management
     Dosage: 25000 UNK, QD
     Route: 042
     Dates: start: 20220518, end: 20220518
  21. COMPOUND AMMONIUM GLYCYRRHETATE S [Concomitant]
     Indication: Prophylaxis
     Dosage: 160 MILLIGRAM, QD
     Route: 042
     Dates: start: 20220518, end: 20220520

REACTIONS (1)
  - Ileus [Recovered/Resolved]

NARRATIVE: CASE EVENT DATE: 20220526
